FAERS Safety Report 19500686 (Version 1)
Quarter: 2021Q3

REPORT INFORMATION
  Report Type: Spontaneous
  Country: CN (occurrence: CN)
  Receive Date: 20210706
  Receipt Date: 20210706
  Transmission Date: 20211014
  Serious: Yes (Hospitalization, Other)
  Sender: FDA-Public Use
  Company Number: CN-BAXTER-2021BAX018542

PATIENT
  Age: 5 Year
  Sex: Female
  Weight: 17.5 kg

DRUGS (15)
  1. UROMITEXAN [Suspect]
     Active Substance: MESNA
     Indication: PROPHYLAXIS
     Dosage: DAY 1 TO DAY 5; BEFORE AND AFTER THE USE OF CYCLOPHOSPHAMIDE
     Route: 065
     Dates: start: 20210609, end: 20210613
  2. 0.9% SODIUM CHLORIDE INJECTION [Suspect]
     Active Substance: SODIUM CHLORIDE
     Dosage: DOSE RE?INTRODUCED, 0.9% SODIUM CHLORIDE + CYCLOPHOSPHAMIDE
     Route: 041
  3. ONDANSETRON HYDROCHLORIDE. [Suspect]
     Active Substance: ONDANSETRON HYDROCHLORIDE
     Dosage: DOSE RE?INTRODUCED, ONDANSETRON + 0.9% SODIUM CHLORIDE
     Route: 042
  4. TOPOTECAN HYDROCHLORIDE. [Suspect]
     Active Substance: TOPOTECAN HYDROCHLORIDE
     Dosage: DOSE RE?INTRODUCED TOPOTECAN HYDROCHLORIDE + 0.9% SODIUM CHLORIDE
     Route: 041
  5. ENDOXAN [Suspect]
     Active Substance: CYCLOPHOSPHAMIDE
     Dosage: PRIOR DRUG
     Route: 065
  6. ENDOXAN [Suspect]
     Active Substance: CYCLOPHOSPHAMIDE
     Dosage: DOSE RE?INTRODUCED, CYCLOPHOSPHAMIDE + SODIUM CHLORIDE
     Route: 041
  7. 0.9% SODIUM CHLORIDE INJECTION [Suspect]
     Active Substance: SODIUM CHLORIDE
     Dosage: DOSE RE?INTRODUCED 0.9% SODIUM CHLORIDE + ONDANSETRON HYDROCHLORIDE
     Route: 041
  8. 0.9% SODIUM CHLORIDE INJECTION [Suspect]
     Active Substance: SODIUM CHLORIDE
     Dosage: DAY 1 TO DAY 5, 0.9% SODIUM CHLORIDE + ONDANSETRON HYDROCHLORIDE 3.6 MG
     Route: 041
     Dates: start: 20210609, end: 20210613
  9. TOPOTECAN HYDROCHLORIDE. [Suspect]
     Active Substance: TOPOTECAN HYDROCHLORIDE
     Dosage: PRIOR DRUG
     Route: 065
  10. 0.9% SODIUM CHLORIDE INJECTION [Suspect]
     Active Substance: SODIUM CHLORIDE
     Indication: MEDICATION DILUTION
     Dosage: DAY 1 TO DAY 5, 0.9% SODIUM CHLORIDE + CYCLOPHOSPHAMIDE 180 MG
     Route: 041
     Dates: start: 20210609, end: 20210613
  11. 0.9% SODIUM CHLORIDE INJECTION [Suspect]
     Active Substance: SODIUM CHLORIDE
     Dosage: DAY 1 TO DAY 5, 0.9% SODIUM CHLORIDE + TOPOTECAN HYDROCHLORIDE 0.54 MG
     Route: 041
     Dates: start: 20210609, end: 20210613
  12. ONDANSETRON HYDROCHLORIDE. [Suspect]
     Active Substance: ONDANSETRON HYDROCHLORIDE
     Indication: PROPHYLAXIS OF NAUSEA AND VOMITING
     Dosage: DAY 1 TO DAY 5, ONDANSETRON + 0.9% SODIUM CHLORIDE 25 ML
     Route: 041
     Dates: start: 20210609, end: 20210613
  13. TOPOTECAN HYDROCHLORIDE. [Suspect]
     Active Substance: TOPOTECAN HYDROCHLORIDE
     Indication: NEUROBLASTOMA RECURRENT
     Dosage: DAY 1 TO DAY 5, TOPOTECAN HYDROCHLORIDE + 0.9% SODIUM CHLORIDE 22 ML
     Route: 041
     Dates: start: 20210609, end: 20210613
  14. ENDOXAN [Suspect]
     Active Substance: CYCLOPHOSPHAMIDE
     Indication: NEUROBLASTOMA RECURRENT
     Dosage: DAY 1 TO DAY 5, CYCLOPHOSPHAMIDE + SODIUM CHLORIDE 43 ML
     Route: 041
     Dates: start: 20210609, end: 20210613
  15. 0.9% SODIUM CHLORIDE INJECTION [Suspect]
     Active Substance: SODIUM CHLORIDE
     Dosage: DOSE RE?INTRODUCED 0.9% SODIUM CHLORIDE + TOPOTECAN HYDROCHLORIDE
     Route: 041

REACTIONS (3)
  - Pancytopenia [Recovering/Resolving]
  - Pancytopenia [Recovered/Resolved]
  - Pyrexia [Recovered/Resolved]

NARRATIVE: CASE EVENT DATE: 20210621
